FAERS Safety Report 8281342-9 (Version None)
Quarter: 2012Q2

REPORT INFORMATION
  Report Type: 
  Country: None (occurrence: None)
  Receive Date: 20120413
  Receipt Date: 20120411
  Transmission Date: 20120825
  Serious: No
  Sender: FDA-Public Use
  Company Number: US-PFIZER INC-2012090645

PATIENT
  Sex: Male
  Weight: 90.703 kg

DRUGS (2)
  1. EFFEXOR XR [Suspect]
     Indication: DEPRESSION
     Dosage: 75 MG, 1X/DAY
     Route: 048
     Dates: start: 20120401
  2. EFFEXOR XR [Suspect]
     Indication: ANXIETY

REACTIONS (2)
  - CONSTIPATION [None]
  - LOSS OF LIBIDO [None]
